FAERS Safety Report 5941200-9 (Version None)
Quarter: 2008Q4

REPORT INFORMATION
  Report Type: 
  Country: None (occurrence: None)
  Receive Date: 20081104
  Receipt Date: 20081023
  Transmission Date: 20090506
  Serious: Yes (Death, Hospitalization)
  Sender: FDA-Public Use
  Company Number: JP-PFIZER INC-2008049202

PATIENT
  Sex: Female
  Weight: 50 kg

DRUGS (9)
  1. ZYVOX [Suspect]
     Indication: PNEUMONIA
     Route: 042
     Dates: start: 20070621, end: 20070627
  2. MODACIN [Concomitant]
     Route: 042
     Dates: start: 20070621, end: 20070705
  3. PRODIF [Concomitant]
     Route: 042
     Dates: start: 20070610, end: 20070627
  4. PREDONINE [Concomitant]
     Indication: PNEUMONIA
     Route: 042
     Dates: end: 20070712
  5. MIDAZOLAM HCL [Concomitant]
     Route: 042
     Dates: start: 20070608, end: 20070712
  6. LASIX [Concomitant]
     Route: 042
     Dates: start: 20070609, end: 20070630
  7. DILTIAZEM HYDROCHLORIDE [Concomitant]
     Route: 042
     Dates: start: 20070622, end: 20070708
  8. PAZUCROSS [Concomitant]
     Indication: PNEUMONIA
     Route: 042
     Dates: end: 20070601
  9. FIRSTCIN [Concomitant]
     Indication: PNEUMONIA
     Route: 042
     Dates: end: 20070601

REACTIONS (4)
  - DEATH [None]
  - PLATELET COUNT DECREASED [None]
  - RENAL FAILURE [None]
  - RESPIRATORY ACIDOSIS [None]
